FAERS Safety Report 4559434-7 (Version None)
Quarter: 2005Q1

REPORT INFORMATION
  Report Type: 
  Country: None (occurrence: None)
  Receive Date: 20050119
  Receipt Date: 20050107
  Transmission Date: 20050727
  Serious: Yes (Hospitalization)
  Sender: FDA-Public Use
  Company Number: 2005CG00071

PATIENT
  Age: 74 Year
  Sex: Male

DRUGS (6)
  1. CRESTOR [Suspect]
     Dosage: 10 MG DAILY PO
     Dates: end: 20040927
  2. SIBELIUM [Suspect]
     Indication: VERTIGO
     Dosage: 10 G DAILY PO
     Route: 048
     Dates: start: 20040924, end: 20040927
  3. BACTRIM DS [Suspect]
     Indication: URINARY TRACT INFECTION
     Dosage: 2 DF DAILY PO
     Route: 048
     Dates: start: 20040915, end: 20040927
  4. AMLOR [Suspect]
     Dosage: 5 MG DAILY PO
     Route: 048
     Dates: end: 20040927
  5. PREVISCAN [Concomitant]
  6. RAMIPRIL [Concomitant]

REACTIONS (5)
  - DELIRIUM [None]
  - EXTRAPYRAMIDAL DISORDER [None]
  - HALLUCINATION [None]
  - HEMIPLEGIA [None]
  - MALAISE [None]
